FAERS Safety Report 23822232 (Version 2)
Quarter: 2025Q4

REPORT INFORMATION
  Report Type: Report from Study
  Country: US (occurrence: US)
  Receive Date: 20240506
  Receipt Date: 20251210
  Transmission Date: 20260117
  Serious: Yes (Other)
  Sender: ABBVIE
  Company Number: US-ABBVIE-5742631

PATIENT
  Sex: Female

DRUGS (5)
  1. PREDNISONE [Suspect]
     Active Substance: PREDNISONE
     Indication: Uveitis
     Route: 065
     Dates: end: 20240416
  2. PREDNISONE [Suspect]
     Active Substance: PREDNISONE
     Indication: Macular oedema
  3. HUMIRA [Suspect]
     Active Substance: ADALIMUMAB
     Indication: Uveitis
     Dosage: FORM STRENGTH: 40MG, CITRATE FREE
     Route: 058
     Dates: start: 20211118
  4. HUMIRA [Suspect]
     Active Substance: ADALIMUMAB
     Route: 058
  5. METHOTREXATE [Suspect]
     Active Substance: METHOTREXATE
     Indication: Product used for unknown indication
     Route: 065

REACTIONS (4)
  - Blindness [Unknown]
  - Visual impairment [Unknown]
  - Macular oedema [Unknown]
  - Chronic obstructive pulmonary disease [Unknown]
